FAERS Safety Report 8334709-4 (Version None)
Quarter: 2012Q2

REPORT INFORMATION
  Report Type: 
  Country: None (occurrence: None)
  Receive Date: 20120503
  Receipt Date: 20120503
  Transmission Date: 20120825
  Serious: Yes (Other)
  Sender: FDA-Public Use
  Company Number: SE-PFIZER INC-2012013770

PATIENT
  Age: 50 Year
  Sex: Female
  Weight: 86.2 kg

DRUGS (16)
  1. SOMATROPIN [Suspect]
     Dosage: 0.2 MG, 1X/DAY
     Dates: start: 20110125
  2. MINIRIN [Concomitant]
     Dosage: UNK
     Route: 048
     Dates: start: 20081219
  3. BROMOCRIPTINE MESYLATE [Concomitant]
     Indication: HYPERPROLACTINAEMIA
     Dosage: UNK
     Route: 048
     Dates: start: 20051129
  4. BROMOCRIPTINE MESYLATE [Concomitant]
     Dosage: UNK
     Dates: start: 20071019
  5. FOLIC ACID [Concomitant]
     Indication: VITAMIN B6 DEFICIENCY
     Dosage: UNK
     Dates: start: 20061114
  6. SOMATROPIN [Suspect]
     Indication: GROWTH HORMONE DEFICIENCY
     Dosage: 0.1 MG DAILY
     Dates: start: 20101110
  7. FERROUS SULFATE TAB [Concomitant]
     Dosage: UNK
     Route: 048
     Dates: start: 20100310
  8. HYDROCORTISONE [Concomitant]
     Indication: SECONDARY ADRENOCORTICAL INSUFFICIENCY
     Dosage: UNK
     Dates: start: 20071015
  9. SOMATROPIN [Suspect]
     Indication: HYPOPITUITARISM
     Dosage: 0.4 MG DAILY, 7 INJECTIONS/WEEK
     Dates: start: 20000704
  10. SOMATROPIN [Suspect]
     Dosage: 0.4 MG, 1X/DAY
     Dates: start: 20110614
  11. LEVOTHYROXINE SODIUM [Concomitant]
     Indication: BLOOD THYROID STIMULATING HORMONE DECREASED
     Dosage: UNK
     Route: 048
     Dates: start: 19951128
  12. MINIRIN [Concomitant]
     Indication: HYPOTHALAMO-PITUITARY DISORDER
     Dosage: UNK
     Dates: start: 19960603
  13. SOMATROPIN [Suspect]
     Dosage: 0.3 MG, 1X/DAY
     Dates: start: 20110215
  14. FOLIC ACID [Concomitant]
     Dosage: UNK
     Dates: start: 20070110
  15. FERROUS SULFATE TAB [Concomitant]
     Indication: IRON DEFICIENCY
     Dosage: UNK
     Route: 048
     Dates: start: 20061114
  16. LEVOTHYROXINE SODIUM [Concomitant]
     Indication: PRIMARY HYPOTHYROIDISM
     Dosage: UNK
     Route: 048
     Dates: start: 20090408

REACTIONS (1)
  - PITUITARY TUMOUR BENIGN [None]
